FAERS Safety Report 9314391 (Version 1)
Quarter: 2013Q2

REPORT INFORMATION
  Report Type: Spontaneous
  Country: US (occurrence: None)
  Receive Date: 20130524
  Receipt Date: 20130524
  Transmission Date: 20140414
  Serious: Yes (Life-Threatening)
  Sender: FDA-Public Use
  Company Number: CC400180512

PATIENT
  Age: 55 Year
  Sex: Male

DRUGS (2)
  1. CEFTRIAXONE [Suspect]
     Indication: PYREXIA
     Dosage: 1G ONCE, IV
     Route: 042
  2. CEFTRIAXONE [Suspect]
     Indication: DYSURIA
     Dosage: 1G ONCE, IV
     Route: 042

REACTIONS (6)
  - Anaphylactic reaction [None]
  - Cyanosis [None]
  - Hypotension [None]
  - Circulatory collapse [None]
  - Respiratory failure [None]
  - Cardiac arrest [None]
